FAERS Safety Report 4909247-9 (Version None)
Quarter: 2006Q1

REPORT INFORMATION
  Report Type: 
  Country: None (occurrence: None)
  Receive Date: 20060213
  Receipt Date: 20041001
  Transmission Date: 20060701
  Serious: Yes (Life-Threatening, Hospitalization, Disabling, Other)
  Sender: FDA-Public Use
  Company Number: 2004AP05072

PATIENT
  Age: 25651 Day
  Sex: Male
  Weight: 68.4 kg

DRUGS (19)
  1. IRESSA [Suspect]
     Indication: NON-SMALL CELL LUNG CANCER
     Route: 048
     Dates: start: 20040809, end: 20040920
  2. PACLITAXEL [Suspect]
     Indication: NON-SMALL CELL LUNG CANCER
     Route: 042
     Dates: start: 20040809, end: 20040913
  3. CARBOPLATIN [Suspect]
     Indication: NON-SMALL CELL LUNG CANCER
     Dates: start: 20040809, end: 20040913
  4. RADIOTHERAPY [Suspect]
     Indication: NON-SMALL CELL LUNG CANCER
  5. COVERSYL [Concomitant]
     Indication: HYPERTENSION
     Dates: end: 20041117
  6. ACETAMINOPHEN [Concomitant]
     Indication: PAIN
     Dates: end: 20041121
  7. DEXAMETHASONE [Concomitant]
     Indication: PROPHYLAXIS OF NAUSEA AND VOMITING
     Dates: start: 20040809, end: 20040915
  8. PROMETHAZINE [Concomitant]
     Indication: PROPHYLAXIS OF NAUSEA AND VOMITING
     Dates: start: 20040809, end: 20040913
  9. RANITIDINE [Concomitant]
     Indication: PROPHYLAXIS OF NAUSEA AND VOMITING
     Dates: start: 20040809, end: 20040913
  10. ONDANSETRON [Concomitant]
     Indication: PROPHYLAXIS OF NAUSEA AND VOMITING
     Dates: start: 20040809, end: 20040915
  11. MAXOLON [Concomitant]
     Indication: PROPHYLAXIS OF NAUSEA AND VOMITING
     Dates: start: 20040809, end: 20041121
  12. COLOXYL WITH SENNA [Concomitant]
     Indication: CONSTIPATION
     Dates: start: 20040810, end: 20041121
  13. MOVICOL [Concomitant]
     Indication: CONSTIPATION
     Dates: start: 20040816, end: 20041121
  14. BISACODYL [Concomitant]
     Indication: CONSTIPATION
     Dates: start: 20040816, end: 20041121
  15. AQUEOUS CREAM [Concomitant]
     Indication: RASH
     Dates: start: 20040809, end: 20040913
  16. XYLOCAINE VISCOUS [Concomitant]
     Indication: OESOPHAGITIS
     Dates: start: 20040830, end: 20040920
  17. BONJELA [Concomitant]
     Indication: MOUTH ULCERATION
     Dates: start: 20040906, end: 20041121
  18. SOMAC [Concomitant]
     Indication: GASTROOESOPHAGEAL REFLUX DISEASE
     Dates: start: 20040913, end: 20041121
  19. ACETAMINOPHEN W/ CODEINE [Concomitant]
     Indication: OESOPHAGITIS
     Dates: start: 20040920, end: 20041121

REACTIONS (6)
  - DEHYDRATION [None]
  - HYPERCALCAEMIA [None]
  - INFECTION [None]
  - OESOPHAGITIS [None]
  - PNEUMONIA [None]
  - PNEUMONITIS [None]
